FAERS Safety Report 15835920 (Version 4)
Quarter: 2022Q1

REPORT INFORMATION
  Report Type: Spontaneous
  Country: ZA (occurrence: ZA)
  Receive Date: 20190117
  Receipt Date: 20220317
  Transmission Date: 20220423
  Serious: Yes (Congenital Anomaly, Other)
  Sender: FDA-Public Use
  Company Number: ZA-AUROBINDO-AUR-APL-2019-001256

PATIENT
  Sex: Male
  Weight: 4 kg

DRUGS (4)
  1. EFAVIRENZ\EMTRICITABINE\TENOFOVIR DISOPROXIL FUMARATE [Suspect]
     Active Substance: EFAVIRENZ\EMTRICITABINE\TENOFOVIR DISOPROXIL FUMARATE
     Indication: HIV infection
     Dosage: 1 DOSAGE FORM, DAILY
     Route: 064
     Dates: start: 20180208
  2. EFAVIRENZ\EMTRICITABINE\TENOFOVIR DISOPROXIL FUMARATE [Suspect]
     Active Substance: EFAVIRENZ\EMTRICITABINE\TENOFOVIR DISOPROXIL FUMARATE
     Dosage: 1 DOSAGE FORM, DAILY
     Route: 064
     Dates: start: 20180629
  3. FOLATE SODIUM [Suspect]
     Active Substance: FOLATE SODIUM
     Indication: Product used for unknown indication
     Route: 064
  4. FERROUS SULFATE [Suspect]
     Active Substance: FERROUS SULFATE
     Indication: Product used for unknown indication
     Route: 064

REACTIONS (3)
  - Congenital umbilical hernia [Unknown]
  - Strabismus congenital [Unknown]
  - Foetal exposure during pregnancy [Unknown]
